FAERS Safety Report 11624674 (Version 2)
Quarter: 2015Q4

REPORT INFORMATION
  Report Type: Spontaneous
  Country: AT (occurrence: AT)
  Receive Date: 20151013
  Receipt Date: 20151030
  Transmission Date: 20160304
  Serious: Yes (Hospitalization)
  Sender: FDA-Public Use
  Company Number: AT-TEVA-600394ISR

PATIENT
  Age: 34 Year
  Sex: Female

DRUGS (6)
  1. DEANXIT [Suspect]
     Active Substance: FLUPENTIXOL DIHYDROCHLORIDE\MELITRACEN HYDROCHLORIDE
     Dosage: 1-0-0, NEUROLEPTICA AND ANTIDEPRESSIVE COMBINATION: FLUPENTIXOL 0.5MG AND MELITRACEN 10MG
  2. CIPRALEX [Suspect]
     Active Substance: ESCITALOPRAM OXALATE
     Dosage: 1-0-0
  3. URSOFALK 250 MG [Suspect]
     Active Substance: URSODIOL
     Dosage: 1-0-0
  4. PANTOPRAZOL 40MG [Suspect]
     Active Substance: PANTOPRAZOLE SODIUM
     Dosage: 1-0-0
  5. ACEMIN 5MG [Suspect]
     Active Substance: LISINOPRIL
     Dosage: 1/2-0-0
  6. LEGALON 70 MG [Suspect]
     Active Substance: MILK THISTLE
     Dosage: 1-0-0

REACTIONS (7)
  - Generalised tonic-clonic seizure [Recovered/Resolved]
  - Epilepsy [Recovered/Resolved]
  - Hepatic function abnormal [Recovered/Resolved]
  - Blood creatine phosphokinase increased [Recovered/Resolved]
  - Seizure [Recovered/Resolved]
  - General physical health deterioration [Recovered/Resolved]
  - Thrombocytopenia [Recovered/Resolved]
